FAERS Safety Report 8143301-6 (Version None)
Quarter: 2012Q1

REPORT INFORMATION
  Report Type: 
  Country: None (occurrence: None)
  Receive Date: 20120217
  Receipt Date: 20120210
  Transmission Date: 20120608
  Serious: Yes (Hospitalization)
  Sender: FDA-Public Use
  Company Number: US-BAYER-2011-041014

PATIENT
  Age: 19 Year
  Sex: Female
  Weight: 56.689 kg

DRUGS (15)
  1. LORTAB [Concomitant]
     Dosage: UNK UNK, PRN
  2. PRILOSEC [Concomitant]
     Dosage: 20 MG, UNK
  3. YAZ [Suspect]
     Indication: ACNE
     Dosage: UNK
     Dates: start: 20080929, end: 20090111
  4. XANAX [Concomitant]
     Dosage: 0.25 MG, UNK
  5. RELPAX [Concomitant]
     Dosage: UNK UNK, PRN
  6. ALBUTEROL [Concomitant]
     Dosage: UNK UNK, PRN
  7. PREDNISONE TAB [Concomitant]
     Dosage: 40 MG, UNK
  8. ALLEGRA [Concomitant]
     Dosage: 180 MG, UNK
  9. NASONEX [Concomitant]
     Dosage: UNK UNK, PRN
  10. YAZ [Suspect]
     Indication: PREMENSTRUAL SYNDROME
  11. ASCORBIC ACID [Concomitant]
  12. LEXAPRO [Concomitant]
     Dosage: 10 MG, UNK
  13. SINGULAIR [Concomitant]
     Dosage: 10 MG, UNK
  14. DARVOCET [Concomitant]
     Dosage: UNK UNK, PRN
  15. YAZ [Suspect]

REACTIONS (7)
  - INJURY [None]
  - DEPRESSION [None]
  - ANXIETY [None]
  - MIGRAINE [None]
  - PAIN [None]
  - HEADACHE [None]
  - INTRACRANIAL VENOUS SINUS THROMBOSIS [None]
